FAERS Safety Report 9269104 (Version 3)
Quarter: 2013Q3

REPORT INFORMATION
  Report Type: Spontaneous
  Country: US (occurrence: US)
  Receive Date: 20130503
  Receipt Date: 20130806
  Transmission Date: 20140515
  Serious: No
  Sender: FDA-Public Use
  Company Number: US-009507513-1305USA000045

PATIENT
  Sex: Female

DRUGS (5)
  1. VICTRELIS [Suspect]
     Indication: CHRONIC HEPATITIS C
     Dosage: UNK, TID
     Route: 048
     Dates: start: 20130428
  2. RIBAVIRIN [Suspect]
     Indication: CHRONIC HEPATITIS C
     Dosage: 400 MG, QD
     Route: 065
     Dates: start: 20130329
  3. PEGASYS [Suspect]
     Indication: CHRONIC HEPATITIS C
     Dosage: 180 MICROGRAM, 1 IN 1 WEEK, QW
     Route: 058
     Dates: start: 20130329
  4. PEGASYS [Suspect]
     Dosage: 90 MICROGRAM, QW
     Route: 058
     Dates: start: 20130705
  5. PEGASYS [Suspect]
     Dosage: 180 MICROGRAM, QW
     Route: 058
     Dates: start: 20130712

REACTIONS (12)
  - White blood cell count decreased [Unknown]
  - Pain in extremity [Unknown]
  - Abdominal discomfort [Unknown]
  - Pyrexia [Recovered/Resolved]
  - Asthma [Unknown]
  - Ageusia [Unknown]
  - Influenza [Unknown]
  - Nausea [Recovered/Resolved]
  - Dizziness [Unknown]
  - Arthralgia [Unknown]
  - Dry mouth [Unknown]
  - Chills [Recovered/Resolved]
